FAERS Safety Report 20731144 (Version 1)
Quarter: 2022Q2

REPORT INFORMATION
  Report Type: Spontaneous
  Country: RO (occurrence: RO)
  Receive Date: 20220420
  Receipt Date: 20220420
  Transmission Date: 20220720
  Serious: Yes (Other)
  Sender: FDA-Public Use
  Company Number: RO-AMGEN-ROUSP2022046466

PATIENT
  Sex: Female

DRUGS (4)
  1. OXALIPLATIN [Suspect]
     Active Substance: OXALIPLATIN
     Indication: Colorectal cancer metastatic
     Dosage: UNK, CYCLE (UNK, CYCLICAL (6 CYCLES))
     Route: 065
     Dates: start: 20210616
  2. VECTIBIX [Suspect]
     Active Substance: PANITUMUMAB
     Indication: Colorectal cancer metastatic
     Dosage: 6 MILLIGRAM/KILOGRAM, CYCLE (6 MILLIGRAM/KILOGRAM, CYCLICAL)
     Route: 042
     Dates: start: 20210616
  3. VECTIBIX [Suspect]
     Active Substance: PANITUMUMAB
     Dosage: 1, UNK, Q3W
     Route: 042
     Dates: start: 2022
  4. CAPECITABINE [Suspect]
     Active Substance: CAPECITABINE
     Indication: Colorectal cancer metastatic
     Dosage: UNK UNK, CYCLE (UNK, CYCLICAL (AFTER 6 CYCLES , DISCONTINUED))
     Route: 065
     Dates: start: 20210616

REACTIONS (7)
  - Metastases to central nervous system [Unknown]
  - Paronychia [Unknown]
  - Neuropathy peripheral [Unknown]
  - Xerosis [Recovering/Resolving]
  - Rash [Recovering/Resolving]
  - Erythema [Recovering/Resolving]
  - Off label use [Unknown]

NARRATIVE: CASE EVENT DATE: 20210616
